FAERS Safety Report 5728421-5 (Version None)
Quarter: 2008Q2

REPORT INFORMATION
  Report Type: 
  Country: None (occurrence: None)
  Receive Date: 20080506
  Receipt Date: 20080429
  Transmission Date: 20081010
  Serious: Yes (Hospitalization)
  Sender: FDA-Public Use
  Company Number: BE-AVENTIS-200811949EU

PATIENT
  Age: 61 Year
  Sex: Female

DRUGS (3)
  1. ENOXAPARIN SODIUM [Suspect]
     Route: 058
     Dates: start: 20080401
  2. COZAAR [Concomitant]
     Indication: HYPERTENSION
  3. AIR-TAL [Concomitant]

REACTIONS (5)
  - ABDOMINAL PAIN [None]
  - ABDOMINAL PAIN UPPER [None]
  - CHEST PAIN [None]
  - HYPERTENSION [None]
  - RENAL PAIN [None]
